FAERS Safety Report 8510043-4 (Version None)
Quarter: 2012Q3

REPORT INFORMATION
  Report Type: 
  Country: None (occurrence: None)
  Receive Date: 20120713
  Receipt Date: 20120710
  Transmission Date: 20120928
  Serious: Yes (Death)
  Sender: FDA-Public Use
  Company Number: US-TEVA-347970USA

PATIENT
  Age: 42 Year
  Sex: Male

DRUGS (2)
  1. NUVIGIL [Suspect]
     Dosage: UNKNOWN
  2. SUBOXONE [Concomitant]

REACTIONS (1)
  - COMPLETED SUICIDE [None]
